FAERS Safety Report 9079832 (Version 2)
Quarter: 2013Q4

REPORT INFORMATION
  Report Type: Spontaneous
  Country: PL (occurrence: PL)
  Receive Date: 20130215
  Receipt Date: 20131212
  Transmission Date: 20140711
  Serious: Yes (Death)
  Sender: FDA-Public Use
  Company Number: PL-GLAXOSMITHKLINE-B0867205A

PATIENT
  Age: 65 Year
  Sex: Female
  Weight: 90 kg

DRUGS (1)
  1. ZINACEF [Suspect]
     Indication: PNEUMONIA
     Route: 042
     Dates: start: 20130123, end: 20130123

REACTIONS (3)
  - Loss of consciousness [Fatal]
  - Cardiac arrest [Fatal]
  - Sudden death [Unknown]
